FAERS Safety Report 19138489 (Version 3)
Quarter: 2021Q2

REPORT INFORMATION
  Report Type: Report from Study
  Country: US (occurrence: US)
  Receive Date: 20210415
  Receipt Date: 20210624
  Transmission Date: 20210717
  Serious: Yes (Hospitalization, Other)
  Sender: FDA-Public Use
  Company Number: US-KYOWAKIRIN-2021BKK005819

PATIENT

DRUGS (2)
  1. CRYSVITA [Suspect]
     Active Substance: BUROSUMAB-TWZA
     Indication: HEREDITARY HYPOPHOSPHATAEMIC RICKETS
     Dosage: STRENGTH 20 AND 30 MG/ML COMBINED TO ACHIEVE THE DOSE OF 50 MG, EVERY 14 DAYS
     Route: 058
     Dates: start: 20200918
  2. CRYSVITA [Suspect]
     Active Substance: BUROSUMAB-TWZA
     Indication: HEREDITARY HYPOPHOSPHATAEMIC RICKETS
     Dosage: STRENGTH 20 AND 30 MG/ML COMBINED TO ACHIEVE THE DOSE OF 50 MG, EVERY 14 DAYS
     Route: 058
     Dates: start: 20200918

REACTIONS (2)
  - Knee operation [Unknown]
  - Surgery [Unknown]

NARRATIVE: CASE EVENT DATE: 20210317
